FAERS Safety Report 7639912-4 (Version None)
Quarter: 2011Q3

REPORT INFORMATION
  Report Type: 
  Country: None (occurrence: None)
  Receive Date: 20110727
  Receipt Date: 20110720
  Transmission Date: 20111222
  Serious: Yes (Hospitalization)
  Sender: FDA-Public Use
  Company Number: ES-B.I. PHARMACEUTICALS,INC./RIDGEFIELD-2011-ES-00174ES

PATIENT
  Sex: Female

DRUGS (6)
  1. SINTROM [Concomitant]
     Route: 048
  2. EMCONCOR COR [Suspect]
     Route: 048
     Dates: start: 20110101
  3. AMIODARONE HCL [Concomitant]
  4. MICARDIS HCT [Suspect]
     Indication: HYPERTENSION
     Dosage: STRENGHT 80/25
     Route: 048
     Dates: start: 20110101, end: 20110529
  5. CARDURA [Suspect]
     Route: 048
     Dates: start: 20110101, end: 20110529
  6. ALLOPURINOL [Concomitant]
     Indication: HYPERURICAEMIA
     Route: 048

REACTIONS (4)
  - DIZZINESS [None]
  - HYPOTENSION [None]
  - DRUG INTERACTION [None]
  - RENAL FAILURE ACUTE [None]
